FAERS Safety Report 18071948 (Version 1)
Quarter: 2020Q3

REPORT INFORMATION
  Report Type: Report from Study
  Country: CA (occurrence: CA)
  Receive Date: 20200727
  Receipt Date: 20200727
  Transmission Date: 20201103
  Serious: Yes (Hospitalization, Other)
  Sender: FDA-Public Use
  Company Number: CA-ACCORD-192476

PATIENT
  Age: 34 Year
  Sex: Female

DRUGS (6)
  1. COSENTYX [Suspect]
     Active Substance: SECUKINUMAB
     Indication: PSORIATIC ARTHROPATHY
     Dosage: 1 EVERY 1 WEEKS
     Route: 058
  2. CALCIPOTRIOL AND BETAMETHASONE [Concomitant]
     Active Substance: BETAMETHASONE\CALCIPOTRIENE
  3. COSENTYX [Suspect]
     Active Substance: SECUKINUMAB
     Indication: PSORIATIC ARTHROPATHY
     Dosage: 1 EVERY 1 MONTHS
     Route: 058
  4. ENBREL [Concomitant]
     Active Substance: ETANERCEPT
  5. HUMIRA [Concomitant]
     Active Substance: ADALIMUMAB
     Dosage: SUBCUTANEOUS SOLUTION
     Route: 058
  6. METHOTREXATE. [Suspect]
     Active Substance: METHOTREXATE
     Indication: PRODUCT USED FOR UNKNOWN INDICATION
     Route: 065

REACTIONS (8)
  - Psoriatic arthropathy [Unknown]
  - Psoriasis [Unknown]
  - Injection site erythema [Unknown]
  - Injection site bruising [Unknown]
  - Scarlet fever [Unknown]
  - Injection site laceration [Unknown]
  - Injection site exfoliation [Unknown]
  - Pharyngitis streptococcal [Unknown]
